FAERS Safety Report 18063058 (Version 2)
Quarter: 2020Q4

REPORT INFORMATION
  Report Type: Report from Study
  Country: None (occurrence: US)
  Receive Date: 20200724
  Receipt Date: 20201021
  Transmission Date: 20210113
  Serious: Yes (Hospitalization, Other)
  Sender: FDA-Public Use
  Company Number: US-ABBVIE-20K-163-3489088-00

PATIENT
  Sex: Male
  Weight: 118.04 kg

DRUGS (9)
  1. LOSARTAN POTASSIUM. [Concomitant]
     Active Substance: LOSARTAN POTASSIUM
     Indication: HYPERTENSION
  2. LYRICA [Concomitant]
     Active Substance: PREGABALIN
     Indication: PAIN
  3. HUMIRA [Suspect]
     Active Substance: ADALIMUMAB
     Indication: CROHN^S DISEASE
     Route: 058
  4. BUTRANS [Concomitant]
     Active Substance: BUPRENORPHINE
     Indication: ABDOMINAL PAIN
  5. SCOPOLAMINE PATCH [Concomitant]
     Active Substance: SCOPOLAMINE
     Indication: NAUSEA
  6. NORTRIPTYLINE [Concomitant]
     Active Substance: NORTRIPTYLINE
     Indication: PAIN
  7. PROPANOLOL [Concomitant]
     Active Substance: PROPRANOLOL HYDROCHLORIDE
     Indication: PAIN
  8. OXYCODONE [Concomitant]
     Active Substance: OXYCODONE
     Indication: ABDOMINAL PAIN
  9. VIIBRYD [Concomitant]
     Active Substance: VILAZODONE HYDROCHLORIDE
     Indication: DEPRESSION

REACTIONS (6)
  - Multiple sclerosis [Unknown]
  - Gas poisoning [Unknown]
  - Fatigue [Unknown]
  - Ammonia increased [Unknown]
  - Memory impairment [Unknown]
  - Confusional state [Unknown]
